FAERS Safety Report 7224059-1 (Version None)
Quarter: 2011Q1

REPORT INFORMATION
  Report Type: 
  Country: None (occurrence: None)
  Receive Date: 20110113
  Receipt Date: 20110105
  Transmission Date: 20110831
  Serious: No
  Sender: FDA-Public Use
  Company Number: US-BIOGENIDEC-2011BI001204

PATIENT
  Sex: Female

DRUGS (1)
  1. TYSABRI [Suspect]
     Indication: CROHN'S DISEASE
     Route: 042
     Dates: start: 20080422

REACTIONS (5)
  - FATIGUE [None]
  - APHASIA [None]
  - ASTHENIA [None]
  - THROAT TIGHTNESS [None]
  - VISUAL IMPAIRMENT [None]
